FAERS Safety Report 12691312 (Version 2)
Quarter: 2016Q4

REPORT INFORMATION
  Report Type: Report from Study
  Country: JP (occurrence: JP)
  Receive Date: 20160826
  Receipt Date: 20161010
  Transmission Date: 20170207
  Serious: Yes (Hospitalization, Disabling, Other)
  Sender: FDA-Public Use
  Company Number: JP-BRISTOL-MYERS SQUIBB COMPANY-BMS-2016-070049

PATIENT
  Age: 78 Year
  Sex: Male

DRUGS (6)
  1. NIVOLUMAB [Suspect]
     Active Substance: NIVOLUMAB
     Dosage: 3 MG/KG,
     Route: 041
     Dates: start: 20160223, end: 20160223
  2. NIVOLUMAB [Suspect]
     Active Substance: NIVOLUMAB
     Dosage: 3 MG/KG,
     Route: 041
     Dates: start: 20160315, end: 20160315
  3. NIVOLUMAB [Suspect]
     Active Substance: NIVOLUMAB
     Dosage: 3 MG/KG,
     Route: 041
     Dates: start: 20160712, end: 20160712
  4. NIVOLUMAB [Suspect]
     Active Substance: NIVOLUMAB
     Dosage: 3 MG/KG,
     Route: 041
     Dates: start: 20160405, end: 20160405
  5. NIVOLUMAB [Suspect]
     Active Substance: NIVOLUMAB
     Dosage: 3 MG/KG,
     Route: 041
     Dates: start: 20160802, end: 20160802
  6. NIVOLUMAB [Suspect]
     Active Substance: NIVOLUMAB
     Indication: NON-SMALL CELL LUNG CANCER
     Dosage: 3 MG/KG,
     Route: 041
     Dates: start: 20160129, end: 20160129

REACTIONS (3)
  - Hemianopia homonymous [Recovered/Resolved with Sequelae]
  - Cerebral haemorrhage [Recovering/Resolving]
  - Pulmonary oedema [Recovered/Resolved]

NARRATIVE: CASE EVENT DATE: 20160206
